FAERS Safety Report 16710707 (Version 1)
Quarter: 2019Q4

REPORT INFORMATION
  Report Type: Spontaneous
  Country: US (occurrence: US)
  Receive Date: 20190815
  Receipt Date: 20190815
  Transmission Date: 20200122
  Serious: Yes (Life-Threatening, Disabling)
  Sender: FDA-Public Use
  Company Number: None

PATIENT
  Age: 46 Year
  Sex: Male
  Weight: 83.25 kg

DRUGS (1)
  1. CYMBALTA [Suspect]
     Active Substance: DULOXETINE HYDROCHLORIDE
     Indication: GENERALISED ANXIETY DISORDER
     Dates: end: 20190716

REACTIONS (4)
  - Pruritus [None]
  - Paraesthesia [None]
  - Drug withdrawal syndrome [None]
  - Balance disorder [None]

NARRATIVE: CASE EVENT DATE: 20190815
